FAERS Safety Report 5660490-3 (Version None)
Quarter: 2008Q1

REPORT INFORMATION
  Report Type: 
  Country: None (occurrence: None)
  Receive Date: 20080306
  Receipt Date: 20080229
  Transmission Date: 20080703
  Serious: Yes (Death)
  Sender: FDA-Public Use
  Company Number: 2007SP024248

PATIENT
  Age: 76 Year
  Sex: Male
  Weight: 55 kg

DRUGS (6)
  1. TEMODAL [Suspect]
     Indication: MALIGNANT GLIOMA
     Dosage: 150 MG/M2; ; PO, 320 MG; QD; PO
     Route: 048
     Dates: start: 20070817, end: 20070821
  2. TEMODAL [Suspect]
     Indication: MALIGNANT GLIOMA
     Dosage: 150 MG/M2; ; PO, 320 MG; QD; PO
     Route: 048
     Dates: start: 20070718
  3. SOLU-MEDROL [Concomitant]
  4. HYPNOVEL [Concomitant]
  5. SCOPOLAMINE [Concomitant]
  6. MORPHINE [Concomitant]

REACTIONS (2)
  - DISEASE PROGRESSION [None]
  - MALIGNANT GLIOMA [None]
